FAERS Safety Report 7219765-9 (Version None)
Quarter: 2010Q4

REPORT INFORMATION
  Report Type: 
  Country: None (occurrence: None)
  Receive Date: 20101126
  Receipt Date: 20100913
  Transmission Date: 20110411
  Serious: No
  Sender: FDA-Public Use
  Company Number: 315104

PATIENT
  Age: 49 Year
  Sex: Female

DRUGS (3)
  1. VICTOZA [Suspect]
     Indication: TYPE 2 DIABETES MELLITUS
     Dosage: 0.6 MG, SUBCUTANEOUS ; 1/2 MG, SUBCUTANEOUS
     Route: 058
     Dates: start: 20100908, end: 20100910
  2. VICTOZA [Suspect]
     Indication: TYPE 2 DIABETES MELLITUS
     Dosage: 0.6 MG, SUBCUTANEOUS ; 1/2 MG, SUBCUTANEOUS
     Route: 058
     Dates: start: 20100911, end: 20100911
  3. APO-PREDNISONE (PREDISONE) [Concomitant]

REACTIONS (1)
  - BLOOD GLUCOSE INCREASED [None]
